FAERS Safety Report 8095966 (Version 4)
Quarter: 2013Q2

REPORT INFORMATION
  Report Type: Report from Study
  Country: FR (occurrence: FR)
  Receive Date: 20110818
  Receipt Date: 20130610
  Transmission Date: 20140414
  Serious: Yes (Death, Disabling)
  Sender: FDA-Public Use
  Company Number: FR-ROCHE-791944

PATIENT
  Age: 50 Year
  Sex: Female
  Weight: 79 kg

DRUGS (11)
  1. BEVACIZUMAB [Suspect]
     Indication: GLIOBLASTOMA
     Dosage: LAST DOSE PRIOR TO SAE: 05 JULY 2011.
     Route: 042
  2. IRINOTECAN [Suspect]
     Indication: GLIOBLASTOMA
     Dosage: LAST DOSE PRIOR TO SAE: 05 JULY 2011.
     Route: 042
  3. TEMOZOLOMIDE [Suspect]
     Indication: GLIOBLASTOMA
     Dosage: LAST DOSE: 27 DEC 2010
     Route: 048
  4. PREDNISOLONE [Suspect]
     Indication: PRODUCT USED FOR UNKNOWN INDICATION
     Route: 065
  5. KEPPRA [Concomitant]
     Route: 065
  6. CACIT D3 [Concomitant]
     Route: 065
  7. INEXIUM [Concomitant]
     Route: 065
  8. TOPALGIC [Concomitant]
     Route: 065
  9. ZOPICLONE [Concomitant]
     Route: 065
  10. LEXOMIL [Concomitant]
     Route: 065
  11. CORTANCYL [Concomitant]

REACTIONS (2)
  - Osteoporotic fracture [Not Recovered/Not Resolved]
  - Neoplasm progression [Fatal]
